FAERS Safety Report 6204935-9 (Version None)
Quarter: 2009Q2

REPORT INFORMATION
  Report Type: 
  Country: None (occurrence: None)
  Receive Date: 20090526
  Receipt Date: 20090515
  Transmission Date: 20091009
  Serious: Yes (Hospitalization)
  Sender: FDA-Public Use
  Company Number: CIP09001275

PATIENT
  Age: 82 Year
  Sex: Female

DRUGS (6)
  1. ACTONEL [Suspect]
     Indication: OSTEOPOROSIS
     Dosage: 17.5 MG ONCE DOSE ONLY, ORAL
     Route: 048
     Dates: start: 20090515, end: 20090515
  2. KAMAG G (MAGNESIUM OXIDE) [Concomitant]
  3. LAC B (LACTOBACILLUS BIFIDUS, LYOPHILIZED) [Concomitant]
  4. TIZANIDINE HCL [Concomitant]
  5. ETODOLAC [Concomitant]
  6. ARICEPT /01318902/ (DONEPEZIL HYDROCHLORIDE) [Concomitant]

REACTIONS (4)
  - CHILLS [None]
  - HYPOAESTHESIA [None]
  - PYREXIA [None]
  - TREMOR [None]
